FAERS Safety Report 16182937 (Version 1)
Quarter: 2019Q2

REPORT INFORMATION
  Report Type: Report from Study
  Country: IT (occurrence: IT)
  Receive Date: 20190411
  Receipt Date: 20190411
  Transmission Date: 20190711
  Serious: Yes (Other)
  Sender: FDA-Public Use
  Company Number: IT-ROCHE-2295915

PATIENT
  Age: 28 Month

DRUGS (2)
  1. VEMURAFENIB. [Suspect]
     Active Substance: VEMURAFENIB
     Route: 048
  2. VEMURAFENIB. [Suspect]
     Active Substance: VEMURAFENIB
     Indication: GANGLIOGLIOMA
     Dosage: MAXIMUM DOSE- 960 MG/DAY
     Route: 048

REACTIONS (1)
  - Skin toxicity [Recovered/Resolved]
